APPROVED DRUG PRODUCT: PRIMIDONE
Active Ingredient: PRIMIDONE
Strength: 250MG
Dosage Form/Route: TABLET;ORAL
Application: A040862 | Product #002
Applicant: CHARTWELL RX SCIENCES LLC
Approved: Oct 3, 2008 | RLD: No | RS: No | Type: DISCN